FAERS Safety Report 4802748-3 (Version None)
Quarter: 2005Q4

REPORT INFORMATION
  Report Type: 
  Country: None (occurrence: None)
  Receive Date: 20051017
  Receipt Date: 20051017
  Transmission Date: 20060501
  Serious: Yes (Hospitalization)
  Sender: FDA-Public Use
  Company Number: None

PATIENT
  Sex: Female
  Weight: 60 kg

DRUGS (3)
  1. FLUDARABINE [Suspect]
     Indication: ACUTE LEUKAEMIA
     Dosage: 48 MG DAILY IV DRIP
     Route: 041
     Dates: start: 20050713, end: 20050717
  2. MELPHALAN 140 MG/M2 [Suspect]
     Indication: ACUTE LEUKAEMIA
     Dosage: 224 MG ONCE IV DRIP
     Route: 041
     Dates: start: 20050718, end: 20050718
  3. CAMPATH [Concomitant]

REACTIONS (5)
  - BAND NEUTROPHIL COUNT DECREASED [None]
  - COUGH [None]
  - MYALGIA [None]
  - PYREXIA [None]
  - SINUS CONGESTION [None]
